FAERS Safety Report 8295695-9 (Version None)
Quarter: 2012Q2

REPORT INFORMATION
  Report Type: 
  Country: None (occurrence: None)
  Receive Date: 20120416
  Receipt Date: 20120402
  Transmission Date: 20120825
  Serious: Yes (Other)
  Sender: FDA-Public Use
  Company Number: 2012-1659

PATIENT
  Sex: Female

DRUGS (2)
  1. SOMATULINE DEPOT [Suspect]
     Indication: ACROMEGALY
     Dosage: 120 MG (120 MG,1 IN 28 D),SUBCUTANEOUS ; 120 MG, ONCE EVERY 28 DAYS (120 MG,1 IN 28 D),SUBCUTANEOUS
     Route: 058
     Dates: start: 20120220, end: 20120320
  2. SOMATULINE DEPOT [Suspect]
     Indication: ACROMEGALY
     Dosage: 120 MG (120 MG,1 IN 28 D),SUBCUTANEOUS ; 120 MG, ONCE EVERY 28 DAYS (120 MG,1 IN 28 D),SUBCUTANEOUS
     Route: 058
     Dates: start: 20100701, end: 20111001

REACTIONS (1)
  - BRAIN NEOPLASM [None]
